FAERS Safety Report 6615575-1 (Version None)
Quarter: 2010Q1

REPORT INFORMATION
  Report Type: 
  Country: None (occurrence: None)
  Receive Date: 20100305
  Receipt Date: 20100201
  Transmission Date: 20100710
  Serious: No
  Sender: FDA-Public Use
  Company Number: US-BAYER-201012884NA

PATIENT
  Age: 50 Year
  Sex: Male
  Weight: 88 kg

DRUGS (5)
  1. SOTALOL [Suspect]
     Indication: ARRHYTHMIA
     Dosage: TOTAL DAILY DOSE: 240 MG  UNIT DOSE: 120 MG
     Route: 048
     Dates: start: 20060101
  2. CARTIA XT [Suspect]
     Indication: ARRHYTHMIA
     Route: 048
     Dates: start: 20080201, end: 20090601
  3. CARTIA XT [Suspect]
     Route: 048
     Dates: start: 20060101, end: 20080101
  4. ALLOPURINOL [Concomitant]
  5. TAZTIA [Concomitant]

REACTIONS (3)
  - CHEST PAIN [None]
  - HEART RATE IRREGULAR [None]
  - STRESS [None]
